FAERS Safety Report 4426126-4 (Version None)
Quarter: 2004Q3

REPORT INFORMATION
  Report Type: 
  Country: None (occurrence: None)
  Receive Date: 20040811
  Receipt Date: 20040728
  Transmission Date: 20050211
  Serious: Yes (Other)
  Sender: FDA-Public Use
  Company Number: USA040669636

PATIENT
  Age: 50 Year
  Sex: Female
  Weight: 65 kg

DRUGS (10)
  1. GEMZAR [Suspect]
     Indication: BREAST CANCER METASTATIC
     Dosage: 1200 MG WEEK
     Dates: start: 20031027, end: 20040419
  2. CLONIDINE HCL [Concomitant]
  3. KCL (POTASSIUM CHLORIDE) [Concomitant]
  4. NORVASC [Concomitant]
  5. VICODIN [Concomitant]
  6. ATIVAN [Concomitant]
  7. LASIX [Concomitant]
  8. ZOMETA [Concomitant]
  9. ARANESP [Concomitant]
  10. NEUPOGEN [Concomitant]

REACTIONS (5)
  - CARDIAC FAILURE CONGESTIVE [None]
  - DIALYSIS [None]
  - RENAL FAILURE [None]
  - RENAL TUBULAR NECROSIS [None]
  - THROMBOTIC MICROANGIOPATHY [None]
